FAERS Safety Report 8321468-4 (Version None)
Quarter: 2012Q2

REPORT INFORMATION
  Report Type: 
  Country: None (occurrence: None)
  Receive Date: 20120430
  Receipt Date: 20120430
  Transmission Date: 20120825
  Serious: Yes (Other)
  Sender: FDA-Public Use
  Company Number: None

PATIENT
  Sex: Female
  Weight: 66.678 kg

DRUGS (2)
  1. OMEPRAZOLE [Suspect]
     Indication: GASTROOESOPHAGEAL REFLUX DISEASE
     Dosage: 20.0 MG
     Route: 048
  2. OMEPRAZOLE [Concomitant]

REACTIONS (5)
  - ANGER [None]
  - DEPRESSION [None]
  - CONDITION AGGRAVATED [None]
  - SUICIDAL IDEATION [None]
  - DRUG DOSE OMISSION [None]
